FAERS Safety Report 5100008-7 (Version None)
Quarter: 2006Q3

REPORT INFORMATION
  Report Type: 
  Country: None (occurrence: None)
  Receive Date: 20060906
  Receipt Date: 20060906
  Transmission Date: 20061208
  Serious: Yes (Hospitalization)
  Sender: FDA-Public Use
  Company Number: None

PATIENT
  Age: 59 Year
  Sex: Male
  Weight: 50 kg

DRUGS (2)
  1. BACTRIM DS [Suspect]
     Indication: POSTOPERATIVE CARE
     Dosage: 800MG/160MG ORAL  4-5 DAYS
     Route: 048
  2. BACTRIM DS [Suspect]
     Indication: PROPHYLAXIS
     Dosage: 800MG/160MG ORAL  4-5 DAYS
     Route: 048

REACTIONS (1)
  - STEVENS-JOHNSON SYNDROME [None]
